FAERS Safety Report 5423320-0 (Version None)
Quarter: 2007Q3

REPORT INFORMATION
  Report Type: 
  Country: None (occurrence: None)
  Receive Date: 20070823
  Receipt Date: 20070816
  Transmission Date: 20080115
  Serious: Yes (Hospitalization, Other)
  Sender: FDA-Public Use
  Company Number: PHFR2007GB02120

PATIENT
  Age: 50 Year
  Sex: Male
  Weight: 145 kg

DRUGS (15)
  1. CLOZARIL [Suspect]
     Indication: SCHIZOPHRENIA
     Route: 048
     Dates: end: 20031219
  2. CLOZARIL [Suspect]
     Route: 048
     Dates: start: 20070522
  3. CLOZARIL [Suspect]
     Dosage: 100MG AM, 200MG PM
     Route: 048
     Dates: start: 20070702
  4. SALBUTAMOL [Concomitant]
     Indication: ASTHMA
     Dosage: PRN
  5. AMLODIPINE [Concomitant]
     Indication: HYPERTENSION
     Dosage: 10MG/DAY
     Route: 048
  6. RAMIPRIL [Concomitant]
     Indication: HYPERTENSION
     Dosage: 5MG/DAY
     Route: 048
  7. FERROUS SULFATE TAB [Concomitant]
     Indication: ANAEMIA
     Dosage: 200 MG, TID
     Route: 048
  8. LEVEMIR [Concomitant]
     Indication: DIABETES MELLITUS
     Dosage: 42U AM/10U PM
     Route: 058
  9. LORAZEPAM [Concomitant]
     Indication: AGITATION
     Dosage: 0.5 MG, BID
     Route: 048
  10. DEPAKOTE [Concomitant]
     Indication: SCHIZOPHRENIA
     Dosage: 1000 MG, BID
     Route: 048
  11. DESLORATADINE [Concomitant]
     Dosage: 5 MG, QD
     Route: 048
  12. MOVICOL [Concomitant]
     Indication: CONSTIPATION
     Route: 048
  13. ZOPICLONE [Concomitant]
     Indication: INSOMNIA
     Dosage: 3.75MG/DAY
     Route: 048
  14. PARACETAMOL [Concomitant]
     Indication: PAIN
     Dosage: 1 G, QID
     Route: 048
  15. DIHYDROCODEINE BITARTRATE INJ [Concomitant]
     Indication: PAIN
     Dosage: 30MG PRN
     Route: 048

REACTIONS (8)
  - ADHESION [None]
  - DIABETES MELLITUS [None]
  - HYPERTENSION [None]
  - INTESTINAL OBSTRUCTION [None]
  - LAPAROTOMY [None]
  - LEFT VENTRICULAR DYSFUNCTION [None]
  - PERITONEAL ADHESIONS DIVISION [None]
  - PLATELET COUNT INCREASED [None]
